FAERS Safety Report 5147437-3 (Version None)
Quarter: 2006Q4

REPORT INFORMATION
  Report Type: 
  Country: None (occurrence: None)
  Receive Date: 20061106
  Receipt Date: 20061027
  Transmission Date: 20070319
  Serious: Yes (Hospitalization)
  Sender: FDA-Public Use
  Company Number: 2006SP005109

PATIENT
  Age: 52 Year
  Sex: Female
  Weight: 95.2554 kg

DRUGS (4)
  1. INTEGRILIN [Suspect]
     Indication: CORONARY ARTERY BYPASS
     Dosage: SEE IMAGE
     Route: 042
     Dates: start: 20060426, end: 20060426
  2. BIVALIRUDIN [Suspect]
     Indication: ANTICOAGULANT THERAPY
     Dosage: SEE IMAGE
     Route: 042
     Dates: start: 20060426, end: 20060426
  3. CLOPIDOGREL [Concomitant]
  4. ASPIRIN [Concomitant]

REACTIONS (1)
  - CORONARY ARTERY RESTENOSIS [None]
